FAERS Safety Report 4883050-0 (Version None)
Quarter: 2006Q1

REPORT INFORMATION
  Report Type: 
  Country: None (occurrence: None)
  Receive Date: 20060113
  Receipt Date: 20051228
  Transmission Date: 20060701
  Serious: Yes (Hospitalization)
  Sender: FDA-Public Use
  Company Number: DE200512002411

PATIENT
  Sex: Female

DRUGS (1)
  1. YENTREVE             (DULOXETINE HYDROCHLORIDE) [Suspect]
     Indication: STRESS INCONTINENCE

REACTIONS (4)
  - HAEMOGLOBIN DECREASED [None]
  - PYELONEPHRITIS [None]
  - RESIDUAL URINE VOLUME [None]
  - URINARY TRACT INFECTION [None]
